FAERS Safety Report 10581397 (Version 1)
Quarter: 2014Q4

REPORT INFORMATION
  Report Type: Spontaneous
  Country: IT (occurrence: None)
  Receive Date: 20141110
  Receipt Date: 20141110
  Transmission Date: 20150529
  Serious: Yes (Death, Hospitalization)
  Sender: FDA-Public Use
  Company Number: IMP_08060_2014

PATIENT
  Age: 63 Year
  Sex: Male

DRUGS (3)
  1. METFORMIN HCL [Suspect]
     Active Substance: METFORMIN HYDROCHLORIDE
     Indication: TYPE 2 DIABETES MELLITUS
  2. ANAGRELIDE [Concomitant]
     Active Substance: ANAGRELIDE
  3. REPAGLINIDE. [Concomitant]
     Active Substance: REPAGLINIDE

REACTIONS (17)
  - Tachycardia [None]
  - Metabolic acidosis [None]
  - Hypoglycaemia [None]
  - Hypotension [None]
  - Bundle branch block left [None]
  - Blood pressure increased [None]
  - Mitochondrial toxicity [None]
  - Abdominal pain [None]
  - Diarrhoea [None]
  - General physical health deterioration [None]
  - Tongue dry [None]
  - Heart rate increased [None]
  - Anion gap [None]
  - Dyspnoea [None]
  - Respiratory rate increased [None]
  - Blood creatinine increased [None]
  - Lactic acidosis [None]
